FAERS Safety Report 9253745 (Version 1)
Quarter: 2013Q2

REPORT INFORMATION
  Report Type: Spontaneous
  Country: US (occurrence: None)
  Receive Date: 20130422
  Receipt Date: 20130422
  Transmission Date: 20140414
  Serious: Yes (Death)
  Sender: FDA-Public Use
  Company Number: None

PATIENT
  Age: 83 Year
  Sex: Male

DRUGS (2)
  1. ZYTIGA [Suspect]
     Route: 048
     Dates: start: 20121102, end: 20130417
  2. ZYTIGA [Suspect]
     Indication: METASTASIS
     Route: 048
     Dates: start: 20121102, end: 20130417

REACTIONS (1)
  - Death [None]
